FAERS Safety Report 23979637 (Version 2)
Quarter: 2024Q2

REPORT INFORMATION
  Report Type: Spontaneous
  Country: ES (occurrence: ES)
  Receive Date: 20240616
  Receipt Date: 20240625
  Transmission Date: 20240716
  Serious: Yes (Other)
  Sender: FDA-Public Use
  Company Number: ES-BBM-ES-BBM-202401740

PATIENT
  Age: 76 Year
  Sex: Male

DRUGS (2)
  1. METRONIDAZOLE [Suspect]
     Active Substance: METRONIDAZOLE
     Indication: Liver abscess
     Dosage: 1000 MILLIGRAM, 3 TIMES A DAY (500 MG/8 H FOR 21DAYS,)
     Route: 065
  2. METRONIDAZOLE [Suspect]
     Active Substance: METRONIDAZOLE
     Dosage: 500 MILLIGRAM, 3 TIMES A DAY
     Route: 065

REACTIONS (4)
  - Cerebellar syndrome [Recovered/Resolved]
  - Toxic encephalopathy [Recovering/Resolving]
  - Encephalopathy [Recovered/Resolved]
  - Off label use [Recovered/Resolved]
